FAERS Safety Report 5752953-7 (Version None)
Quarter: 2008Q2

REPORT INFORMATION
  Report Type: 
  Country: None (occurrence: None)
  Receive Date: 20080529
  Receipt Date: 20080523
  Transmission Date: 20081010
  Serious: Yes (Other)
  Sender: FDA-Public Use
  Company Number: FR-ABBOTT-08P-056-0448858-00

PATIENT
  Sex: Female
  Weight: 59 kg

DRUGS (1)
  1. SEROPLEX FILM-COATED TABLETS [Suspect]
     Indication: DEPRESSION
     Route: 048
     Dates: start: 20080101, end: 20080401

REACTIONS (1)
  - OPTIC NEURITIS [None]
